FAERS Safety Report 4263695-1 (Version None)
Quarter: 2004Q1

REPORT INFORMATION
  Report Type: 
  Country: None (occurrence: None)
  Receive Date: 20040102
  Receipt Date: 20031218
  Transmission Date: 20041129
  Serious: Yes (Hospitalization)
  Sender: FDA-Public Use
  Company Number: S03-FRA-04838-01

PATIENT
  Age: 51 Year
  Sex: Female

DRUGS (3)
  1. SEROPRAM (CITALOPRAM HYDROBROMIDE) [Suspect]
     Indication: MAJOR DEPRESSION
     Dosage: 20 MG QD PO
     Route: 048
     Dates: start: 20020719, end: 20021031
  2. SEROPRAM (CITALOPRAM HYDROBROMIDE) [Suspect]
     Indication: MAJOR DEPRESSION
     Dosage: 20 MG QD PO
     Route: 048
     Dates: start: 20021103, end: 20021223
  3. SEROPLEX FILM-COATED [Concomitant]

REACTIONS (7)
  - ANXIETY [None]
  - CHILLS [None]
  - CONDITION AGGRAVATED [None]
  - DIARRHOEA [None]
  - MEMORY IMPAIRMENT [None]
  - NICOTINE DEPENDENCE [None]
  - VERTIGO [None]
